FAERS Safety Report 25776970 (Version 1)
Quarter: 2025Q3

REPORT INFORMATION
  Report Type: Spontaneous
  Country: US (occurrence: US)
  Receive Date: 20250909
  Receipt Date: 20250909
  Transmission Date: 20251021
  Serious: No
  Sender: DOMPE FARMACEUTICI
  Company Number: US-FARMAPROD-202409-3349

PATIENT
  Sex: Female

DRUGS (6)
  1. OXERVATE [Suspect]
     Active Substance: CENEGERMIN-BKBJ
     Indication: Illness
     Route: 047
     Dates: start: 20240812
  2. CYCLOSPORINE [Concomitant]
     Active Substance: CYCLOSPORINE
  3. AMLODIPINE BESYLATE [Concomitant]
     Active Substance: AMLODIPINE BESYLATE
  4. AZITHROMYCIN [Concomitant]
     Active Substance: AZITHROMYCIN
  5. DULERA [Concomitant]
     Active Substance: FORMOTEROL FUMARATE DIHYDRATE\MOMETASONE FUROATE
  6. ENBREL [Concomitant]
     Active Substance: ETANERCEPT

REACTIONS (3)
  - Product dose omission issue [Not Recovered/Not Resolved]
  - Product administration error [Not Recovered/Not Resolved]
  - Eyelid pain [Not Recovered/Not Resolved]
